FAERS Safety Report 5731967-7 (Version None)
Quarter: 2008Q2

REPORT INFORMATION
  Report Type: 
  Country: None (occurrence: None)
  Receive Date: 20080506
  Receipt Date: 20080422
  Transmission Date: 20081010
  Serious: Yes (Other)
  Sender: FDA-Public Use
  Company Number: JPI-P-003518

PATIENT
  Age: 2 Decade
  Sex: Female

DRUGS (1)
  1. LUVOX IR (FLUVOXAMINE MALEATE) (TABLETS) (FLUVOXAMINE [Suspect]
     Indication: DRUG USE FOR UNKNOWN INDICATION
     Dosage: ORAL
     Route: 048

REACTIONS (2)
  - GALACTORRHOEA [None]
  - MENSTRUAL DISORDER [None]
